FAERS Safety Report 16475584 (Version 2)
Quarter: 2023Q4

REPORT INFORMATION
  Report Type: Report from Study
  Country: ES (occurrence: ES)
  Receive Date: 20190625
  Receipt Date: 20231025
  Transmission Date: 20240110
  Serious: Yes (Hospitalization)
  Sender: FDA-Public Use
  Company Number: None

PATIENT
  Age: 69 Year
  Sex: Female

DRUGS (4)
  1. BUPRENORPHINE [Interacting]
     Active Substance: BUPRENORPHINE
     Indication: Injury
     Dosage: UNK
     Route: 065
     Dates: start: 20170222, end: 20170306
  2. TAPENTADOL [Interacting]
     Active Substance: TAPENTADOL
     Indication: Product used for unknown indication
     Dosage: 100 MG, Q12H
     Route: 065
     Dates: start: 20170222, end: 20170306
  3. PREGABALIN [Interacting]
     Active Substance: PREGABALIN
     Indication: Product used for unknown indication
     Dosage: 75 MG, Q12H
     Route: 065
     Dates: start: 20170222, end: 20170306
  4. DIAZEPAM [Interacting]
     Active Substance: DIAZEPAM
     Indication: Product used for unknown indication
     Dosage: 5 MILLIGRAM (1/2-1/2-1)
     Route: 065
     Dates: start: 20170222, end: 20170306

REACTIONS (7)
  - Bradyphrenia [Recovered/Resolved]
  - Disorientation [Recovered/Resolved]
  - Drug interaction [Unknown]
  - Drug interaction [Unknown]
  - Drug interaction [Unknown]
  - Drug interaction [Unknown]
  - Drug interaction [Unknown]

NARRATIVE: CASE EVENT DATE: 20170302
